FAERS Safety Report 8573623-6 (Version None)
Quarter: 2012Q3

REPORT INFORMATION
  Report Type: 
  Country: None (occurrence: None)
  Receive Date: 20120806
  Receipt Date: 20120727
  Transmission Date: 20120928
  Serious: Yes (Hospitalization, Other)
  Sender: FDA-Public Use
  Company Number: JP-VERTEX PHARMACEUTICALS INC.-AE-2012-009996

PATIENT
  Age: 63 Year
  Sex: Female

DRUGS (12)
  1. GAMOFA [Concomitant]
     Dates: start: 20120703, end: 20120709
  2. PANTHENYL [Concomitant]
     Dates: start: 20120703, end: 20120704
  3. URSO 250 [Concomitant]
     Route: 048
     Dates: end: 20120702
  4. REBETOL [Concomitant]
     Indication: HEPATITIS C
     Route: 048
     Dates: start: 20120515, end: 20120612
  5. REBETOL [Concomitant]
     Route: 048
     Dates: start: 20120613, end: 20120626
  6. PROCTOSEDYL [Concomitant]
     Route: 061
  7. TELAVIC (TELAPREVIR) [Suspect]
     Indication: HEPATITIS C
     Route: 048
     Dates: start: 20120515, end: 20120702
  8. PEG-INTRON [Concomitant]
     Indication: HEPATITIS C
     Route: 058
     Dates: start: 20120515, end: 20120529
  9. PEG-INTRON [Concomitant]
     Route: 058
     Dates: start: 20120606, end: 20120627
  10. URSO 250 [Concomitant]
     Route: 048
  11. REBETOL [Concomitant]
     Route: 048
     Dates: start: 20120627, end: 20120702
  12. BIO- THREE [Concomitant]
     Route: 048
     Dates: start: 20120522

REACTIONS (8)
  - BLADDER TAMPONADE [None]
  - ANAEMIA [None]
  - DIARRHOEA [None]
  - HAEMATURIA [None]
  - URINARY BLADDER HAEMORRHAGE [None]
  - URINARY TRACT INFECTION [None]
  - DEPRESSIVE SYMPTOM [None]
  - WHITE BLOOD CELL COUNT DECREASED [None]
